FAERS Safety Report 10226280 (Version 3)
Quarter: 2014Q3

REPORT INFORMATION
  Report Type: Spontaneous
  Country: US (occurrence: US)
  Receive Date: 20140609
  Receipt Date: 20140903
  Transmission Date: 20150326
  Serious: No
  Sender: FDA-Public Use
  Company Number: US-GILEAD-2014-0104596

PATIENT
  Age: 73 Year
  Sex: Female

DRUGS (6)
  1. FUROSEMIDE. [Concomitant]
     Active Substance: FUROSEMIDE
  2. LISINOPRIL. [Concomitant]
     Active Substance: LISINOPRIL
  3. RIOCIGUAT [Concomitant]
     Active Substance: RIOCIGUAT
  4. LETAIRIS [Suspect]
     Active Substance: AMBRISENTAN
     Indication: PRODUCT USED FOR UNKNOWN INDICATION
     Dosage: 10 MG, QID
     Route: 065
     Dates: start: 20140110
  5. ATENOLOL. [Concomitant]
     Active Substance: ATENOLOL
  6. NIFEDIPINE. [Concomitant]
     Active Substance: NIFEDIPINE

REACTIONS (4)
  - Abdominal distension [Unknown]
  - Oedema [Unknown]
  - Oedema peripheral [Unknown]
  - Hypotension [Unknown]
